FAERS Safety Report 9080026 (Version 1)
Quarter: 2013Q1

REPORT INFORMATION
  Report Type: Spontaneous
  Country: ES (occurrence: ES)
  Receive Date: 20130130
  Receipt Date: 20130130
  Transmission Date: 20140127
  Serious: Yes (Other)
  Sender: FDA-Public Use
  Company Number: ES-TEVA-382418ISR

PATIENT
  Sex: Male

DRUGS (13)
  1. FLUDARABINE [Suspect]
     Indication: CHRONIC LYMPHOCYTIC LEUKAEMIA
     Dosage: DAYS 1-3
     Route: 042
  2. FLUDARABINE [Suspect]
     Indication: CHRONIC LYMPHOCYTIC LEUKAEMIA
     Route: 065
  3. CYCLOPHOSPHAMIDE [Suspect]
     Indication: CHRONIC LYMPHOCYTIC LEUKAEMIA
     Dosage: ON DAYS 1-3
     Route: 042
  4. CYCLOPHOSPHAMIDE [Suspect]
     Indication: CHRONIC LYMPHOCYTIC LEUKAEMIA
     Route: 065
  5. MITOXANTRONE [Suspect]
     Indication: CHRONIC LYMPHOCYTIC LEUKAEMIA
     Dosage: ON DAY 1
     Route: 042
  6. MITOXANTRONE [Suspect]
     Indication: CHRONIC LYMPHOCYTIC LEUKAEMIA
     Route: 065
  7. RITUXIMAB [Concomitant]
     Indication: CHRONIC LYMPHOCYTIC LEUKAEMIA
     Dosage: DAY 1
     Route: 065
  8. RITUXIMAB [Concomitant]
     Indication: CHRONIC LYMPHOCYTIC LEUKAEMIA
     Dosage: 375 MG/M2 DAY 1
     Route: 065
  9. COTRIMOXAZOLE [Concomitant]
     Indication: PROPHYLAXIS
     Route: 065
  10. FILGRASTIM [Concomitant]
  11. PEGFILGRASTIM [Concomitant]
  12. ANTIBACTERIAL [Concomitant]
     Indication: PROPHYLAXIS
  13. ANTIVIRAL [Concomitant]
     Indication: PROPHYLAXIS

REACTIONS (1)
  - Lung neoplasm malignant [Unknown]
